FAERS Safety Report 18968400 (Version 1)
Quarter: 2021Q1

REPORT INFORMATION
  Report Type: Report from Study
  Country: NL (occurrence: NL)
  Receive Date: 20210304
  Receipt Date: 20210304
  Transmission Date: 20210420
  Serious: Yes (Other)
  Sender: FDA-Public Use
  Company Number: NL-VER-202100001

PATIENT
  Age: 73 Year
  Sex: Male

DRUGS (1)
  1. TRIPTORELIN PAMOATE [Suspect]
     Active Substance: TRIPTORELIN PAMOATE
     Indication: PROSTATE CANCER
     Dosage: OTHER BATCH NUMBERS WERE T05540, T09542 AND ?EXPIRATION DATES WERE DEC?2021 AND SEP?2022 RESPECTIVEL
     Route: 030
     Dates: start: 20200220

REACTIONS (3)
  - Gastrointestinal bacterial infection [Unknown]
  - Bacteraemia [Recovering/Resolving]
  - Cardiac pacemaker insertion [Unknown]

NARRATIVE: CASE EVENT DATE: 202011
